FAERS Safety Report 15319671 (Version 1)
Quarter: 2018Q3

REPORT INFORMATION
  Report Type: Spontaneous
  Country: US (occurrence: US)
  Receive Date: 20180827
  Receipt Date: 20180827
  Transmission Date: 20181010
  Serious: Yes (Other)
  Sender: FDA-Public Use
  Company Number: US-009507513-1808USA010303

PATIENT
  Age: 72 Year
  Sex: Female
  Weight: 87.1 kg

DRUGS (5)
  1. METHOTREXATE. [Suspect]
     Active Substance: METHOTREXATE
     Dosage: 15 MG, QW
     Dates: start: 20180226, end: 20180406
  2. DENILEUKIN DIFTITOX [Suspect]
     Active Substance: DENILEUKIN DIFTITOX
     Dosage: 9 MICROGRAM PER KILOGRAM, CYCLICAL
     Route: 042
     Dates: start: 20170410, end: 20170414
  3. DENILEUKIN DIFTITOX [Suspect]
     Active Substance: DENILEUKIN DIFTITOX
     Dosage: 9 MICROGRAM PER KILOGRAM, CYCLICAL
     Route: 042
     Dates: start: 20170417, end: 20170707
  4. REMERON [Suspect]
     Active Substance: MIRTAZAPINE
     Indication: PRURITUS
     Dosage: 7.5 MG, UNK
     Dates: start: 20180409, end: 20180521
  5. METHOTREXATE. [Suspect]
     Active Substance: METHOTREXATE
     Dosage: 10 MG, QW
     Dates: start: 20180112, end: 201802

REACTIONS (2)
  - Autoimmune hepatitis [Recovering/Resolving]
  - Drug ineffective [Unknown]

NARRATIVE: CASE EVENT DATE: 2018
